FAERS Safety Report 25449421 (Version 1)
Quarter: 2025Q2

REPORT INFORMATION
  Report Type: Spontaneous
  Country: US (occurrence: US)
  Receive Date: 20250618
  Receipt Date: 20250618
  Transmission Date: 20250717
  Serious: No
  Sender: HIKMA
  Company Number: US-HIKMA PHARMACEUTICALS USA INC.-US-H14001-25-04569

PATIENT
  Age: 4 Decade
  Sex: Female

DRUGS (6)
  1. ACETAMINOPHEN [Suspect]
     Active Substance: ACETAMINOPHEN
     Indication: Spinal pain
     Route: 065
  2. CODEINE [Suspect]
     Active Substance: CODEINE
     Indication: Spinal pain
     Route: 065
  3. HYDROCODONE [Suspect]
     Active Substance: HYDROCODONE
     Indication: Spinal pain
     Route: 065
  4. MORPHINE [Suspect]
     Active Substance: MORPHINE
     Indication: Spinal pain
     Route: 065
  5. OXYCODONE [Suspect]
     Active Substance: OXYCODONE
     Indication: Spinal pain
     Route: 065
  6. TRAMADOL [Suspect]
     Active Substance: TRAMADOL
     Indication: Spinal pain
     Route: 065

REACTIONS (1)
  - Drug ineffective [Unknown]
